FAERS Safety Report 8973407 (Version 1)
Quarter: 2012Q4

REPORT INFORMATION
  Report Type: 
  Country: US (occurrence: US)
  Receive Date: 20121218
  Receipt Date: 20121218
  Transmission Date: 20130627
  Serious: Yes (Death)
  Sender: FDA-Public Use
  Company Number: US-INCYTE CORPORATION-2012IN002598

PATIENT
  Sex: Male

DRUGS (3)
  1. JAKAFI [Suspect]
     Indication: CHRONIC MYELOID LEUKAEMIA
     Dosage: 10 mg, bid
     Route: 048
  2. SCOPOLAMINE [Concomitant]
  3. MEGACE [Concomitant]

REACTIONS (1)
  - Death [Fatal]
